FAERS Safety Report 19092262 (Version 1)
Quarter: 2021Q2

REPORT INFORMATION
  Report Type: Spontaneous
  Country: US (occurrence: US)
  Receive Date: 20210405
  Receipt Date: 20210405
  Transmission Date: 20210717
  Serious: No
  Sender: FDA-Public Use
  Company Number: US-MISSION PHARMACAL COMPANY-2108887

PATIENT
  Age: 22 Year
  Sex: Male

DRUGS (2)
  1. THIOLA EC [Suspect]
     Active Substance: TIOPRONIN
     Indication: CYSTINURIA
     Route: 048
     Dates: start: 20190831
  2. THIOLA EC [Suspect]
     Active Substance: TIOPRONIN
     Route: 048
     Dates: start: 20190831

REACTIONS (4)
  - Pyrexia [Unknown]
  - Myalgia [Unknown]
  - Drug ineffective [Unknown]
  - Product administration error [Unknown]
